FAERS Safety Report 9868992 (Version 1)
Quarter: 2014Q1

REPORT INFORMATION
  Report Type: Report from Study
  Country: US (occurrence: US)
  Receive Date: 20140205
  Receipt Date: 20140205
  Transmission Date: 20141002
  Serious: Yes (Hospitalization)
  Sender: FDA-Public Use
  Company Number: US-JNJFOC-20140116388

PATIENT
  Sex: Male
  Weight: 3.02 kg

DRUGS (8)
  1. RISPERDAL [Suspect]
     Indication: BIPOLAR DISORDER
     Dosage: MOTHER DOSING
     Route: 064
     Dates: start: 20121027
  2. BENADRYL [Suspect]
     Route: 064
  3. BENADRYL [Suspect]
     Indication: SLEEP DISORDER
     Dosage: UNTIL ATLEAST 30 WEEKS (MOTHER^S DOSING)
     Route: 064
     Dates: start: 20121027
  4. SEROQUEL [Suspect]
     Indication: SLEEP DISORDER
     Dosage: UNTIL ATLEAST 30 WEEKS (MOTHER DOSING)
     Route: 064
  5. LITHIUM [Suspect]
     Indication: BIPOLAR DISORDER
     Dosage: 900-1200 MG??UNTIL ATLEAST 30 WEEKS
     Route: 064
     Dates: start: 20121027
  6. KLONOPIN [Suspect]
     Indication: ANXIETY
     Dosage: DURATION: UNTIL ATLEAST 30 WEEKS (MOTHER^S DOSING)
     Route: 064
     Dates: start: 20121027
  7. METFORMIN [Suspect]
     Indication: DIABETES MELLITUS
     Dosage: UNTIL ATLEAST 30 WEEKS (MOTHER^S DOSING)
     Route: 064
     Dates: start: 20121027
  8. FOLIC ACID [Concomitant]
     Indication: PREGNANCY
     Route: 065
     Dates: start: 20121027

REACTIONS (2)
  - Intensive care [Unknown]
  - Foetal exposure during pregnancy [Recovered/Resolved]
